FAERS Safety Report 13912947 (Version 28)
Quarter: 2019Q2

REPORT INFORMATION
  Report Type: Report from Study
  Country: US (occurrence: US)
  Receive Date: 20170828
  Receipt Date: 20190604
  Transmission Date: 20190711
  Serious: Yes (Other)
  Sender: FDA-Public Use
  Company Number: US-ACTELION-A-NJ2017-158327

PATIENT
  Age: 59 Year
  Sex: Female
  Weight: 82.99 kg

DRUGS (15)
  1. UPTRAVI [Suspect]
     Active Substance: SELEXIPAG
     Indication: PULMONARY ARTERIAL HYPERTENSION
     Dosage: 1400 MCG, BID
     Route: 048
  2. UPTRAVI [Suspect]
     Active Substance: SELEXIPAG
     Dosage: 1000 MCG, QD
     Route: 048
  3. UPTRAVI [Suspect]
     Active Substance: SELEXIPAG
     Dosage: 1200 MCG, BID
     Route: 048
  4. OXYGEN. [Concomitant]
     Active Substance: OXYGEN
     Route: 045
  5. UPTRAVI [Suspect]
     Active Substance: SELEXIPAG
     Dosage: 800 MCG, QD
     Route: 048
  6. UPTRAVI [Suspect]
     Active Substance: SELEXIPAG
     Dosage: 600 MCG, QD
     Route: 048
  7. OPSUMIT [Suspect]
     Active Substance: MACITENTAN
     Dosage: 10 MG, QD
     Route: 048
  8. OPSUMIT [Suspect]
     Active Substance: MACITENTAN
     Indication: PULMONARY ARTERIAL HYPERTENSION
     Dosage: 10 MG, QD
     Route: 048
  9. UPTRAVI [Suspect]
     Active Substance: SELEXIPAG
     Dosage: UNK
     Route: 048
     Dates: start: 20170808
  10. UPTRAVI [Suspect]
     Active Substance: SELEXIPAG
     Dosage: 1200 MCG, QD
     Route: 048
  11. ADCIRCA [Concomitant]
     Active Substance: TADALAFIL
  12. UPTRAVI [Suspect]
     Active Substance: SELEXIPAG
     Dosage: 1600 MCG, BID
     Route: 048
     Dates: start: 201812
  13. UPTRAVI [Suspect]
     Active Substance: SELEXIPAG
     Dosage: 400 MCG, QD
     Route: 048
  14. UPTRAVI [Suspect]
     Active Substance: SELEXIPAG
     Dosage: 600 MCG, BID
     Route: 048
     Dates: start: 20170822
  15. TADALAFIL. [Concomitant]
     Active Substance: TADALAFIL

REACTIONS (35)
  - Liver transplant [Unknown]
  - Rheumatoid arthritis [Unknown]
  - Asthenia [Unknown]
  - Oral surgery [Unknown]
  - Tooth infection [Unknown]
  - Tachycardia [Unknown]
  - Dyspnoea [Unknown]
  - Swelling face [Unknown]
  - Headache [Unknown]
  - Nausea [Not Recovered/Not Resolved]
  - Dizziness [Unknown]
  - Hepatic enzyme abnormal [Unknown]
  - Flushing [Unknown]
  - Pain [Unknown]
  - Unevaluable event [Unknown]
  - Gait disturbance [Unknown]
  - Oxygen saturation decreased [Unknown]
  - Stress [Unknown]
  - Epistaxis [Unknown]
  - Diarrhoea [Unknown]
  - Oedema peripheral [Unknown]
  - Eye swelling [Unknown]
  - Muscular weakness [Unknown]
  - Malaise [Unknown]
  - Abdominal discomfort [Not Recovered/Not Resolved]
  - Decreased appetite [Unknown]
  - Swelling [Unknown]
  - Hot flush [Unknown]
  - Hepatic cirrhosis [Unknown]
  - Hypotension [Unknown]
  - Arthralgia [Unknown]
  - Feeling hot [Unknown]
  - Oedema [Unknown]
  - Dysphonia [Unknown]
  - Dyspnoea exertional [Unknown]

NARRATIVE: CASE EVENT DATE: 201902
